FAERS Safety Report 4644794-9 (Version None)
Quarter: 2005Q2

REPORT INFORMATION
  Report Type: 
  Country: None (occurrence: None)
  Receive Date: 20050426
  Receipt Date: 20050411
  Transmission Date: 20051028
  Serious: Yes (Hospitalization)
  Sender: FDA-Public Use
  Company Number: CH-BOEHRINGER INGELHEIM PHARMACEUTICALS, INC.-2005-DE-01400GD

PATIENT
  Age: 73 Year
  Sex: Female

DRUGS (13)
  1. PARACETAMOL [Suspect]
     Dosage: ON POSTOPERATIVE DAYS 1 TO 4 DOSES OF 1 G, 4 G, 2 G, AND 3 G PER DAY, RESPECTIVELY
  2. FUROSEMIDE [Suspect]
  3. PRAVASTATIN [Suspect]
  4. PROPOFOL [Suspect]
     Indication: SEDATION
     Dosage: VARIABLE DOSES AS NEEDED
     Route: 042
  5. PHENYTOIN [Suspect]
     Indication: CONVULSION
     Dosage: LOADING DOSE
  6. AMIODARONE HCL [Suspect]
     Indication: ATRIAL FIBRILLATION
     Dosage: LOADING DOSE ON POSTOPERATIVE DAY 3
     Route: 042
  7. ASPIRIN [Concomitant]
     Dosage: LOW-DOSE
  8. ATENOLOL [Concomitant]
  9. INSULIN [Concomitant]
  10. HEPARIN [Concomitant]
  11. MORPHINE [Concomitant]
     Indication: ANALGESIC EFFECT
     Dosage: VARIABLE DOSES AS NEEDED
     Route: 042
  12. PHENPROCOUMON [Concomitant]
  13. PROPRANALOL [Concomitant]

REACTIONS (5)
  - ATRIAL FIBRILLATION [None]
  - DRUG TOXICITY [None]
  - HEPATOCELLULAR DAMAGE [None]
  - HEPATOTOXICITY [None]
  - TACHYCARDIA [None]
